FAERS Safety Report 12846770 (Version 1)
Quarter: 2016Q4

REPORT INFORMATION
  Report Type: Spontaneous
  Country: US (occurrence: US)
  Receive Date: 20161013
  Receipt Date: 20161013
  Transmission Date: 20170207
  Serious: Yes (Other)
  Sender: FDA-Public Use
  Company Number: None

PATIENT
  Sex: Female

DRUGS (1)
  1. CELCOXIB [Suspect]
     Active Substance: CELECOXIB

REACTIONS (8)
  - Asthenia [None]
  - Peripheral swelling [None]
  - Dyspnoea exertional [None]
  - Drug hypersensitivity [None]
  - Abdominal pain [None]
  - Rhinorrhoea [None]
  - Balance disorder [None]
  - Dizziness [None]
